FAERS Safety Report 15661311 (Version 1)
Quarter: 2018Q4

REPORT INFORMATION
  Report Type: Report from Study
  Country: US (occurrence: US)
  Receive Date: 20181127
  Receipt Date: 20181127
  Transmission Date: 20190205
  Serious: Yes (Hospitalization, Other)
  Sender: FDA-Public Use
  Company Number: US-TAIHO ONCOLOGY  INC-EU-2018-01386

PATIENT
  Age: 84 Year
  Sex: Female
  Weight: 69.46 kg

DRUGS (14)
  1. CLOTRIMAZOLE. [Concomitant]
     Active Substance: CLOTRIMAZOLE
     Dates: start: 20180920
  2. PROCHLORPERAZINE. [Concomitant]
     Active Substance: PROCHLORPERAZINE
     Dates: start: 20181004
  3. LONSURF [Suspect]
     Active Substance: TIPIRACIL HYDROCHLORIDE\TRIFLURIDINE
     Indication: RECTOSIGMOID CANCER
     Dosage: UNKNOWN CYCLE AND STRENGTH
     Route: 048
     Dates: start: 20180802, end: 2018
  4. LONSURF [Suspect]
     Active Substance: TIPIRACIL HYDROCHLORIDE\TRIFLURIDINE
     Indication: COLORECTAL CANCER
     Dosage: CURRENT CYCLE UNKNOWN. 2 TABLETS IN THE MORNING AND 1 IN THE AFTERNOON FOR ONE PERIOD.?DOSE UNKNOWN
     Route: 048
     Dates: start: 2018, end: 2018
  5. CYANOCOBALAM [Concomitant]
     Active Substance: CYANOCOBALAMIN
     Dates: start: 20181002
  6. LASIX [Concomitant]
     Active Substance: FUROSEMIDE
     Dates: start: 20180801
  7. MUPIROCIN. [Concomitant]
     Active Substance: MUPIROCIN
     Dates: start: 20180920
  8. SMZ/TMP DS [Concomitant]
     Active Substance: SULFAMETHOXAZOLE\TRIMETHOPRIM
     Dosage: 800-160
     Dates: start: 20180813
  9. LEVAQUIN [Suspect]
     Active Substance: LEVOFLOXACIN
     Indication: KIDNEY INFECTION
     Route: 042
  10. LEVAQUIN [Suspect]
     Active Substance: LEVOFLOXACIN
     Indication: SEPSIS
  11. ENOXAPARIN [Concomitant]
     Active Substance: ENOXAPARIN
     Dosage: 40/0.4 ML
     Dates: start: 20180809
  12. METOPROLOL SUCCINATE. [Concomitant]
     Active Substance: METOPROLOL SUCCINATE
     Dosage: ER
     Dates: start: 20171019
  13. GABAPENTIN. [Concomitant]
     Active Substance: GABAPENTIN
     Dosage: NI
  14. PRILOSEC [Concomitant]
     Active Substance: OMEPRAZOLE MAGNESIUM
     Dosage: OTC
     Dates: start: 20180801

REACTIONS (15)
  - Diarrhoea [Not Recovered/Not Resolved]
  - Blood magnesium decreased [Unknown]
  - Blood iron decreased [Unknown]
  - Fatigue [Not Recovered/Not Resolved]
  - Blood potassium decreased [Unknown]
  - Kidney infection [Not Recovered/Not Resolved]
  - Insomnia [Not Recovered/Not Resolved]
  - Decreased appetite [Not Recovered/Not Resolved]
  - Atrial fibrillation [Not Recovered/Not Resolved]
  - Nausea [Not Recovered/Not Resolved]
  - Seizure [Unknown]
  - Sepsis [Unknown]
  - Tremor [Unknown]
  - Malaise [Unknown]
  - Oedema peripheral [Not Recovered/Not Resolved]

NARRATIVE: CASE EVENT DATE: 2018
